FAERS Safety Report 7692854-0 (Version None)
Quarter: 2011Q3

REPORT INFORMATION
  Report Type: 
  Country: None (occurrence: None)
  Receive Date: 20110815
  Receipt Date: 20110808
  Transmission Date: 20111222
  Serious: Yes (Death, Hospitalization)
  Sender: FDA-Public Use
  Company Number: FUR-11-15

PATIENT
  Age: 22 Year
  Sex: Female

DRUGS (6)
  1. METOCLOPRAMIDE [Concomitant]
  2. METHAMPHETAMINE [Concomitant]
  3. MORPHINE [Concomitant]
  4. FUROSEMIDE [Suspect]
  5. MDMA [Concomitant]
  6. METHADONE HCL [Concomitant]

REACTIONS (1)
  - DEATH [None]
